FAERS Safety Report 8083037-3 (Version None)
Quarter: 2012Q1

REPORT INFORMATION
  Report Type: 
  Country: None (occurrence: None)
  Receive Date: 20120127
  Receipt Date: 20110301
  Transmission Date: 20120608
  Serious: No
  Sender: FDA-Public Use
  Company Number: US-ABBOTT-11P-163-0708478-00

PATIENT
  Age: 50 Year
  Sex: Male

DRUGS (11)
  1. ATENOLOL [Concomitant]
     Indication: HYPERTENSION
  2. ALLOPURINOL [Concomitant]
     Indication: PROPHYLAXIS
  3. VITAMIN B-12 [Concomitant]
     Indication: PRODUCT USED FOR UNKNOWN INDICATION
  4. LISINOPRIL [Concomitant]
     Indication: HYPERTENSION
  5. POTASSIUM CITRATE [Concomitant]
     Indication: PROPHYLAXIS
  6. FE [Concomitant]
     Indication: PRODUCT USED FOR UNKNOWN INDICATION
  7. NEBUTONE [Concomitant]
     Indication: PRODUCT USED FOR UNKNOWN INDICATION
  8. HUMIRA [Suspect]
     Indication: RHEUMATOID ARTHRITIS
     Dates: start: 20110126
  9. POTASSIUM CITRATE [Concomitant]
     Indication: NEPHROLITHIASIS
     Dosage: 2 TABLETS BID
  10. ALLOPURINOL [Concomitant]
     Indication: NEPHROLITHIASIS
  11. PRILOSEC [Concomitant]
     Indication: GASTRIC DISORDER

REACTIONS (1)
  - FATIGUE [None]
